FAERS Safety Report 24371805 (Version 1)
Quarter: 2024Q3

REPORT INFORMATION
  Report Type: Spontaneous
  Country: HK (occurrence: HK)
  Receive Date: 20240927
  Receipt Date: 20240927
  Transmission Date: 20241017
  Serious: Yes (Other)
  Sender: BAYER
  Company Number: HK-BAYER-2024A137129

PATIENT
  Age: 30 Year
  Sex: Female

DRUGS (1)
  1. YAZ [Suspect]
     Active Substance: DROSPIRENONE\ETHINYL ESTRADIOL
     Dosage: UNK
     Route: 048
     Dates: start: 202408

REACTIONS (5)
  - Hypoaesthesia [None]
  - Dyspnoea [None]
  - Headache [None]
  - Chest pain [None]
  - Intermenstrual bleeding [None]

NARRATIVE: CASE EVENT DATE: 20240101
